FAERS Safety Report 8612172-3 (Version None)
Quarter: 2012Q3

REPORT INFORMATION
  Report Type: 
  Country: None (occurrence: None)
  Receive Date: 20120822
  Receipt Date: 20120815
  Transmission Date: 20120928
  Serious: Yes (Hospitalization, Other)
  Sender: FDA-Public Use
  Company Number: GB-B.I. PHARMACEUTICALS,INC./RIDGEFIELD-2012-UK-00699UK

PATIENT
  Sex: Female
  Weight: 49.9 kg

DRUGS (9)
  1. SIMVASTATIN [Concomitant]
     Indication: CEREBROVASCULAR ACCIDENT
     Dosage: 40 MG
     Route: 048
     Dates: start: 20120613
  2. BISOPROLOL FUMARATE [Concomitant]
     Indication: ATRIAL FIBRILLATION
     Dosage: 75 MG
     Route: 048
     Dates: start: 20040607
  3. PRADAXA [Suspect]
     Indication: ATRIAL FIBRILLATION
     Dosage: 220 MG
     Route: 048
     Dates: start: 20120113, end: 20120425
  4. DIGOXIN [Concomitant]
     Indication: ATRIAL FIBRILLATION
     Dosage: 125 MCG
     Route: 048
     Dates: start: 20040607
  5. ACETAMINOPHEN [Concomitant]
     Indication: ANALGESIC THERAPY
     Dosage: 1G QDS
     Route: 048
     Dates: start: 20050204
  6. MEBEVERINE [Concomitant]
     Indication: ABDOMINAL DISCOMFORT
     Dosage: 136 MG
     Route: 048
     Dates: start: 19961009
  7. OMEPRAZOLE [Concomitant]
     Indication: DYSPEPSIA
     Dosage: 25 MG
     Route: 048
     Dates: start: 20010612
  8. PRADAXA [Suspect]
     Indication: TRANSIENT ISCHAEMIC ATTACK
  9. ANASTROZOLE [Concomitant]
     Indication: BREAST CANCER
     Dosage: 1 MG
     Route: 048
     Dates: start: 20040624

REACTIONS (7)
  - RECTAL HAEMORRHAGE [None]
  - EMBOLIC STROKE [None]
  - HEMIPARESIS [None]
  - TREATMENT NONCOMPLIANCE [None]
  - PRODUCT SIZE ISSUE [None]
  - COMA SCALE ABNORMAL [None]
  - ATRIAL FIBRILLATION [None]
